FAERS Safety Report 6883407-2 (Version None)
Quarter: 2010Q3

REPORT INFORMATION
  Report Type: 
  Country: None (occurrence: None)
  Receive Date: 20100729
  Receipt Date: 20100716
  Transmission Date: 20110219
  Serious: Yes (Hospitalization, Other)
  Sender: FDA-Public Use
  Company Number: DE-ELI_LILLY_AND_COMPANY-DE201007003572

PATIENT
  Sex: Female

DRUGS (1)
  1. FORTEO [Suspect]
     Dosage: UNK, DAILY (1/D)
     Route: 058
     Dates: start: 20090408, end: 20100626

REACTIONS (2)
  - PANCREATIC CARCINOMA [None]
  - PNEUMONIA [None]
